FAERS Safety Report 15501476 (Version 1)
Quarter: 2018Q4

REPORT INFORMATION
  Report Type: Report from Study
  Country: US (occurrence: US)
  Receive Date: 20181015
  Receipt Date: 20181015
  Transmission Date: 20190205
  Serious: Yes (Other)
  Sender: FDA-Public Use
  Company Number: US-AMGEN-USASL2018113465

PATIENT
  Age: 54 Year
  Sex: Female

DRUGS (2)
  1. BLINCYTO [Suspect]
     Active Substance: BLINATUMOMAB
     Indication: ACUTE LYMPHOCYTIC LEUKAEMIA
     Dosage: UNK, UNK
     Route: 065
  2. ATIVAN [Concomitant]
     Active Substance: LORAZEPAM

REACTIONS (5)
  - Asthenia [Not Recovered/Not Resolved]
  - Neutropenia [Unknown]
  - Hallucination [Unknown]
  - Mental disorder [Unknown]
  - Peripheral swelling [Unknown]

NARRATIVE: CASE EVENT DATE: 20180813
